FAERS Safety Report 5854931-6 (Version None)
Quarter: 2008Q3

REPORT INFORMATION
  Report Type: 
  Country: None (occurrence: None)
  Receive Date: 20080822
  Receipt Date: 20080324
  Transmission Date: 20090109
  Serious: No
  Sender: FDA-Public Use
  Company Number: US-ABBOTT-08P-163-0444013-00

PATIENT
  Sex: Female
  Weight: 81.72 kg

DRUGS (7)
  1. SYNTHROID [Suspect]
     Indication: HYPOTHYROIDISM
     Route: 048
     Dates: start: 20050301
  2. SYNTHROID [Suspect]
     Route: 048
  3. THYROID TAB [Suspect]
     Indication: HYPOTHYROIDISM
     Route: 048
     Dates: start: 19720101, end: 19930101
  4. THYROID TAB [Suspect]
     Route: 048
     Dates: start: 19960101, end: 20050301
  5. LEVOTHYROXINE SODIUM [Suspect]
     Indication: HYPOTHYROIDISM
     Route: 048
     Dates: start: 19930101, end: 19960101
  6. RABEPRAZOLE SODIUM [Concomitant]
     Indication: GASTROOESOPHAGEAL REFLUX DISEASE
     Route: 048
     Dates: start: 20080201
  7. OMEPRAZOLE [Concomitant]
     Indication: GASTROOESOPHAGEAL REFLUX DISEASE
     Route: 048
     Dates: start: 19970101, end: 20080201

REACTIONS (7)
  - DEPRESSION [None]
  - DRUG DOSE OMISSION [None]
  - DYSPEPSIA [None]
  - FEELING JITTERY [None]
  - INSOMNIA [None]
  - PALPITATIONS [None]
  - WEIGHT INCREASED [None]
